FAERS Safety Report 17988740 (Version 1)
Quarter: 2020Q3

REPORT INFORMATION
  Report Type: Spontaneous
  Country: DE (occurrence: DE)
  Receive Date: 20200707
  Receipt Date: 20200707
  Transmission Date: 20201103
  Serious: Yes (Other)
  Sender: FDA-Public Use
  Company Number: NVSC2020DE189386

PATIENT
  Sex: Male
  Weight: 73 kg

DRUGS (1)
  1. CIPROFLOXACIN. [Suspect]
     Active Substance: CIPROFLOXACIN
     Indication: PRODUCT USED FOR UNKNOWN INDICATION
     Dosage: 2 DF, QD (TABLET)
     Route: 065
     Dates: start: 20170107, end: 20170110

REACTIONS (11)
  - Autoimmune thyroiditis [Unknown]
  - Panic attack [Unknown]
  - Neck pain [Unknown]
  - Adverse drug reaction [Unknown]
  - Fatigue [Unknown]
  - Back pain [Unknown]
  - Tendon pain [Unknown]
  - Vertigo [Unknown]
  - Arthralgia [Unknown]
  - Loss of personal independence in daily activities [Unknown]
  - Myalgia [Unknown]

NARRATIVE: CASE EVENT DATE: 20170107
